FAERS Safety Report 6045504-3 (Version None)
Quarter: 2009Q1

REPORT INFORMATION
  Report Type: 
  Country: None (occurrence: None)
  Receive Date: 20090121
  Receipt Date: 20090116
  Transmission Date: 20090719
  Serious: Yes (Disabling)
  Sender: FDA-Public Use
  Company Number: A0763803A

PATIENT
  Sex: Male

DRUGS (3)
  1. LAMICTAL [Suspect]
     Dosage: 200MG PER DAY
     Route: 048
     Dates: start: 20080101
  2. TEGRETOL [Concomitant]
  3. KLONOPIN [Concomitant]

REACTIONS (3)
  - DEPRESSION [None]
  - DYSPHEMIA [None]
  - SPEECH DISORDER [None]
